FAERS Safety Report 4263245-X (Version None)
Quarter: 2004Q1

REPORT INFORMATION
  Report Type: 
  Country: None (occurrence: None)
  Receive Date: 20040104
  Receipt Date: 20040104
  Transmission Date: 20041129
  Serious: Yes (Hospitalization, Disabling)
  Sender: FDA-Public Use
  Company Number: None

PATIENT
  Sex: Male
  Weight: 79.3795 kg

DRUGS (7)
  1. CIPROFLOXACIN [Suspect]
     Indication: INFECTION PROPHYLAXIS
     Dosage: 500 MG BID ORAL
     Route: 048
     Dates: start: 20031124, end: 20031201
  2. DEXAMETH [Suspect]
     Indication: INFLAMMATION
     Dosage: VARIABLE ORAL
     Route: 048
     Dates: start: 20031124, end: 20031201
  3. DEXAMETH [Suspect]
     Indication: OEDEMA
     Dosage: VARIABLE ORAL
     Route: 048
     Dates: start: 20031124, end: 20031201
  4. LISINOPRIL [Concomitant]
  5. SIMVASTATIN [Concomitant]
  6. TRICOR [Concomitant]
  7. WELLBUTRIN SR [Concomitant]

REACTIONS (1)
  - TENDON RUPTURE [None]
